FAERS Safety Report 23514120 (Version 3)
Quarter: 2024Q1

REPORT INFORMATION
  Report Type: Spontaneous
  Country: JP (occurrence: JP)
  Receive Date: 20240212
  Receipt Date: 20240328
  Transmission Date: 20240409
  Serious: Yes (Hospitalization, Other)
  Sender: FDA-Public Use
  Company Number: JP-ferring-EVA202400169FERRINGPH

PATIENT

DRUGS (19)
  1. DEGARELIX [Suspect]
     Active Substance: DEGARELIX
     Indication: Prostate cancer
     Dosage: 80 MG (MAINTENANCE DOSE)
     Route: 065
     Dates: start: 20220729, end: 20221221
  2. DEGARELIX [Suspect]
     Active Substance: DEGARELIX
     Dosage: 240 MG, ONCE/SINGLE (120 MG X 2) (LOADING DOSE)
     Route: 065
     Dates: start: 20220701, end: 20220701
  3. ELSAMET [Concomitant]
     Dosage: 1 DOSAGE FORM, 2 TIMES DAILY
  4. SILODOSIN OD [Concomitant]
     Dosage: 1 DOSAGE FORM, 2 TIMES DAILY
  5. SILODOSIN OD [Concomitant]
     Dosage: 2 DOSAGE FORM, 2 TIMES DAILY
     Dates: start: 2023
  6. ROSUVASTATIN CALCIUM [Concomitant]
     Active Substance: ROSUVASTATIN CALCIUM
     Dosage: 1 DOSAGE FORM, DAILY
  7. AZELNIDIPINE\OLMESARTAN MEDOXOMIL [Concomitant]
     Active Substance: AZELNIDIPINE\OLMESARTAN MEDOXOMIL
     Dosage: 1 DOSAGE FORM, DAILY
  8. CARVEDILOL [Concomitant]
     Active Substance: CARVEDILOL
     Dosage: 1 DOSAGE FORM, DAILY
  9. CARVEDILOL [Concomitant]
     Active Substance: CARVEDILOL
     Dosage: 2 DOSAGE FORM, 2 TIMES DAILY
  10. ENTRESTO [Concomitant]
     Active Substance: SACUBITRIL\VALSARTAN
     Dosage: 2 DOSAGE FORM, 2 TIMES DAILY
  11. ELIQUIS [Concomitant]
     Active Substance: APIXABAN
     Dosage: 4 DOSAGE FORM, 2 TIMES DAILY
  12. RABEPRAZOLE SODIUM [Concomitant]
     Active Substance: RABEPRAZOLE SODIUM
     Dosage: 1 DOSAGE FORM, DAILY
  13. FUROSEMIDE [Concomitant]
     Active Substance: FUROSEMIDE
     Dosage: 1 DOSAGE FORM, DAILY
  14. FUROSEMIDE [Concomitant]
     Active Substance: FUROSEMIDE
     Dosage: 2 DOSAGE FORM, 2 TIMES DAILY
  15. AMIODARONE HYDROCHLORIDE [Concomitant]
     Active Substance: AMIODARONE HYDROCHLORIDE
     Dosage: 1 DOSAGE FORM, DAILY
  16. TOLVAPTAN [Concomitant]
     Active Substance: TOLVAPTAN
     Dosage: 1 DOSAGE FORM, DAILY
  17. VERAPAMIL HYDROCHLORIDE [Concomitant]
     Active Substance: VERAPAMIL HYDROCHLORIDE
     Dosage: 2 DOSAGE FORM, 2 TIMES DAILY
  18. PIMOBENDAN [Concomitant]
     Active Substance: PIMOBENDAN
     Dosage: 2 DOSAGE FORM, 2 TIMES DAILY
  19. ESTAZOLAM [Concomitant]
     Active Substance: ESTAZOLAM
     Dosage: 1 DOSAGE FORM, DAILY

REACTIONS (4)
  - Arterial haemorrhage [Recovered/Resolved]
  - Cardiac failure [Recovering/Resolving]
  - Cardiac failure [Unknown]
  - Cardiac failure [Recovering/Resolving]

NARRATIVE: CASE EVENT DATE: 20220819
